FAERS Safety Report 9350795 (Version 2)
Quarter: 2013Q3

REPORT INFORMATION
  Report Type: Report from Study
  Country: US (occurrence: US)
  Receive Date: 20130617
  Receipt Date: 20130710
  Transmission Date: 20140515
  Serious: Yes (Other)
  Sender: FDA-Public Use
  Company Number: PHEH2013US011080

PATIENT
  Age: 72 Year
  Sex: Male

DRUGS (9)
  1. GLEEVEC [Suspect]
     Indication: CHRONIC MYELOID LEUKAEMIA
     Dosage: 400 MG, DAILY
     Route: 048
     Dates: start: 20021217
  2. GLEEVEC [Suspect]
     Dosage: 400 MG, DAILY
     Route: 048
     Dates: start: 20091223
  3. GLEEVEC [Suspect]
     Dosage: 400 MG, DAILY
     Route: 048
     Dates: start: 20091229
  4. SIMVASTATIN [Concomitant]
     Dosage: 40 MG, UNK
     Route: 048
  5. LISINOPRIL [Concomitant]
     Dosage: 20 MG, UNK
     Route: 048
  6. ASPIRIN (E.C.) [Concomitant]
     Dosage: 81 MG, UNK
     Route: 048
  7. OMEPRAZOLE [Concomitant]
     Dosage: UNK UKN, UNK
  8. MULTIVITAMINS [Concomitant]
     Dosage: UNK UKN, UNK
  9. TRIPLEX [Concomitant]
     Dosage: UNK UKN, UNK

REACTIONS (6)
  - Basal cell carcinoma [Unknown]
  - Meningioma [Recovered/Resolved]
  - Second primary malignancy [Unknown]
  - Dyslipidaemia [Unknown]
  - Nocturia [Unknown]
  - Diarrhoea [Unknown]
